FAERS Safety Report 4640119-3 (Version None)
Quarter: 2005Q2

REPORT INFORMATION
  Report Type: 
  Country: None (occurrence: None)
  Receive Date: 20050420
  Receipt Date: 20050411
  Transmission Date: 20051028
  Serious: Yes (Death)
  Sender: FDA-Public Use
  Company Number: FR-ROCHE-401573

PATIENT
  Age: 44 Year
  Sex: Male
  Weight: 80 kg

DRUGS (5)
  1. PEGASYS [Suspect]
     Indication: HEPATITIS C
     Route: 058
     Dates: start: 20040615, end: 20050115
  2. PEGASYS [Suspect]
     Route: 058
     Dates: start: 20050115, end: 20050316
  3. RIBAVIRIN [Suspect]
     Indication: HEPATITIS C
     Route: 048
     Dates: start: 20040615, end: 20050316
  4. TERCIAN [Suspect]
     Indication: DRUG USE FOR UNKNOWN INDICATION
     Route: 048
     Dates: end: 20050317
  5. SERESTA [Suspect]
     Indication: DRUG USE FOR UNKNOWN INDICATION
     Route: 048
     Dates: end: 20050317

REACTIONS (7)
  - BONE MARROW TOXICITY [None]
  - DRUG TOXICITY [None]
  - INFLUENZA LIKE ILLNESS [None]
  - MULTI-ORGAN FAILURE [None]
  - PANCYTOPENIA [None]
  - PNEUMOCOCCAL SEPSIS [None]
  - SEPTIC SHOCK [None]
